FAERS Safety Report 4326625-X (Version None)
Quarter: 2004Q1

REPORT INFORMATION
  Report Type: 
  Country: None (occurrence: None)
  Receive Date: 20040325
  Receipt Date: 20030814
  Transmission Date: 20041129
  Serious: No
  Sender: FDA-Public Use
  Company Number: US045074

PATIENT
  Sex: Female

DRUGS (2)
  1. NEULASTA [Suspect]
     Indication: CHEMOTHERAPY
     Dates: start: 20030701
  2. NEOPOGEN [Concomitant]

REACTIONS (2)
  - PAIN OF SKIN [None]
  - RASH [None]
